FAERS Safety Report 4592721-5 (Version None)
Quarter: 2005Q1

REPORT INFORMATION
  Report Type: 
  Country: None (occurrence: None)
  Receive Date: 20050222
  Receipt Date: 20050203
  Transmission Date: 20050727
  Serious: Yes (Hospitalization)
  Sender: FDA-Public Use
  Company Number: JP-2005-001619

PATIENT
  Age: 32 Year
  Sex: Female

DRUGS (1)
  1. BETAFERON (INTERFERON BETA-1B) INJECTION, 250 MICROGRAM [Suspect]
     Indication: MULTIPLE SCLEROSIS
     Dates: start: 20040601, end: 20050201

REACTIONS (4)
  - INJECTION SITE ABSCESS [None]
  - MENINGITIS [None]
  - NASOPHARYNGITIS [None]
  - NEPHROTIC SYNDROME [None]
